FAERS Safety Report 18288091 (Version 1)
Quarter: 2020Q3

REPORT INFORMATION
  Report Type: Report from Study
  Country: CO (occurrence: CO)
  Receive Date: 20200921
  Receipt Date: 20200921
  Transmission Date: 20201103
  Serious: Yes (Other)
  Sender: FDA-Public Use
  Company Number: CO-UCBSA-2020036182

PATIENT
  Age: 19 Year
  Sex: Male

DRUGS (5)
  1. VITAMIN C [Concomitant]
     Active Substance: ASCORBIC ACID
     Indication: SUPPLEMENTATION THERAPY
     Route: 048
  2. AZATIOPRINA [AZATHIOPRINE] [Concomitant]
     Active Substance: AZATHIOPRINE
     Indication: CROHN^S DISEASE
     Dosage: 250 MILLIGRAM, ONCE DAILY (QD)
     Route: 048
  3. CERTOLIZUMAB PEGOL [Suspect]
     Active Substance: CERTOLIZUMAB PEGOL
     Indication: CROHN^S DISEASE
     Dosage: 400 MILLIGRAM, EV 4 WEEKS
     Route: 058
     Dates: start: 20191114
  4. VITAMIN D [VITAMIN D NOS] [Concomitant]
     Active Substance: VITAMIN D NOS
     Indication: SUPPLEMENTATION THERAPY
     Dosage: 7000, UI
     Route: 048
  5. AZATIOPRINA [AZATHIOPRINE] [Concomitant]
     Active Substance: AZATHIOPRINE
     Dosage: 300 MILLIGRAM, ONCE DAILY (QD)
     Route: 048

REACTIONS (8)
  - Ageusia [Recovered/Resolved]
  - Somnolence [Recovering/Resolving]
  - Diarrhoea [Recovered/Resolved]
  - Pyrexia [Recovered/Resolved]
  - Haematochezia [Recovering/Resolving]
  - Anosmia [Recovered/Resolved]
  - Fatigue [Recovering/Resolving]
  - SARS-CoV-2 test positive [Unknown]

NARRATIVE: CASE EVENT DATE: 20200723
